FAERS Safety Report 8003307-4 (Version None)
Quarter: 2011Q4

REPORT INFORMATION
  Report Type: 
  Country: None (occurrence: None)
  Receive Date: 20111222
  Receipt Date: 20111219
  Transmission Date: 20120403
  Serious: Yes (Death, Other)
  Sender: FDA-Public Use
  Company Number: PHHY2011AR110851

PATIENT
  Sex: Male

DRUGS (1)
  1. EXFORGE [Suspect]
     Indication: BLOOD PRESSURE
     Dosage: 1 DF(80/5 MG), DAILY

REACTIONS (3)
  - HAEMORRHAGE [None]
  - LUNG NEOPLASM MALIGNANT [None]
  - CARDIAC ARREST [None]
